FAERS Safety Report 12578133 (Version 2)
Quarter: 2016Q3

REPORT INFORMATION
  Report Type: Spontaneous
  Country: JO (occurrence: JO)
  Receive Date: 20160721
  Receipt Date: 20160809
  Transmission Date: 20161109
  Serious: Yes (Death)
  Sender: FDA-Public Use
  Company Number: JO-BIOVITRUM-2016JO0539

PATIENT
  Age: 10 Year
  Sex: Female
  Weight: 18 kg

DRUGS (7)
  1. PHOSPHATE [Concomitant]
     Active Substance: UNSPECIFIED INGREDIENT
     Dosage: 1X2
     Route: 048
     Dates: start: 20150201, end: 20160717
  2. ALDACTONE [Concomitant]
     Active Substance: SPIRONOLACTONE
     Route: 048
     Dates: start: 20150201, end: 20160717
  3. ORFADIN [Suspect]
     Active Substance: NITISINONE
     Indication: TYROSINAEMIA
     Dosage: 2 MG/KG/DAY
     Route: 048
     Dates: start: 20150301, end: 20160717
  4. NAHCO3 [Concomitant]
     Active Substance: SODIUM BICARBONATE
     Dosage: 1X3
     Route: 048
     Dates: start: 20150201, end: 20160717
  5. OMEPRAZOLE. [Concomitant]
     Active Substance: OMEPRAZOLE
     Route: 042
  6. CACO3 [Concomitant]
     Dosage: 3X2
     Route: 048
     Dates: start: 20150201, end: 20160717
  7. INDERAL [Concomitant]
     Active Substance: PROPRANOLOL HYDROCHLORIDE
     Dosage: 1/2 X 2
     Route: 048
     Dates: start: 20150201, end: 20160717

REACTIONS (2)
  - Gastric varices haemorrhage [Fatal]
  - Intestinal varices haemorrhage [Fatal]

NARRATIVE: CASE EVENT DATE: 20160717
